FAERS Safety Report 4819568-6 (Version None)
Quarter: 2005Q4

REPORT INFORMATION
  Report Type: 
  Country: None (occurrence: None)
  Receive Date: 20051102
  Receipt Date: 20051018
  Transmission Date: 20060501
  Serious: Yes (Hospitalization, Other)
  Sender: FDA-Public Use
  Company Number: USA-2005-0021718

PATIENT
  Sex: Male

DRUGS (15)
  1. OXYCODONE HCL [Suspect]
     Dosage: 5 MG, SEE TEXT
  2. OXYCONTIN (OXYCODONE HYDROCHORIDE)CR TABLET [Concomitant]
  3. WELLBUTRIL (A,FEBUTAMONE HYDROCHLORIDE) [Concomitant]
  4. SONATA (ZALEPLOM) [Concomitant]
  5. BACLOFEM (BACLOFEM) [Concomitant]
  6. SUDAFED 12 HOUR [Concomitant]
  7. AFRIN NASAL SPRAY (OXYMETAZOLINE HYDROCHLORIDE) [Concomitant]
  8. ALBUTEROL [Concomitant]
  9. NORFLEX [Concomitant]
  10. BUSPAR (BUSPIRONE HYERCOCHLORIDE) [Concomitant]
  11. INDERAL [Concomitant]
  12. LIBRIUM ^ICN^ (CHLORDIAZEPOXIDE) [Concomitant]
  13. NEURONTIN [Concomitant]
  14. VIOXX [Concomitant]
  15. NEURONTIN [Concomitant]

REACTIONS (39)
  - AGGRESSION [None]
  - ANGER [None]
  - ANXIETY [None]
  - ARTHRALGIA [None]
  - ASTHENIA [None]
  - BEREAVEMENT REACTION [None]
  - BLUNTED AFFECT [None]
  - CHEST DISCOMFORT [None]
  - CHEST PAIN [None]
  - CRYING [None]
  - DECREASED APPETITE [None]
  - DECREASED INTEREST [None]
  - DELUSION [None]
  - DEPRESSION [None]
  - DIARRHOEA [None]
  - DISTURBANCE IN ATTENTION [None]
  - DRUG INEFFECTIVE [None]
  - DRUG WITHDRAWAL SYNDROME [None]
  - DYSPHORIA [None]
  - DYSPNOEA [None]
  - DYSTHYMIC DISORDER [None]
  - ELECTROCARDIOGRAM T WAVE ABNORMAL [None]
  - FEELINGS OF WORTHLESSNESS [None]
  - HAEMOPTYSIS [None]
  - HALLUCINATION, VISUAL [None]
  - INSOMNIA [None]
  - OEDEMA PERIPHERAL [None]
  - PAIN [None]
  - PERSONALITY DISORDER [None]
  - PNEUMONIA [None]
  - PSYCHIATRIC SYMPTOM [None]
  - PSYCHOMOTOR HYPERACTIVITY [None]
  - PSYCHOTIC DISORDER [None]
  - PYREXIA [None]
  - RHINORRHOEA [None]
  - SUICIDAL IDEATION [None]
  - TENSION [None]
  - TINNITUS [None]
  - TREMOR [None]
